FAERS Safety Report 6526967-3 (Version None)
Quarter: 2010Q1

REPORT INFORMATION
  Report Type: 
  Country: None (occurrence: None)
  Receive Date: 20100104
  Receipt Date: 20100104
  Transmission Date: 20100710
  Serious: Yes (Hospitalization)
  Sender: FDA-Public Use
  Company Number: None

PATIENT
  Sex: Female
  Weight: 74.8435 kg

DRUGS (1)
  1. VYTORIN [Suspect]
     Dosage: 1 TABLET DAILY
     Dates: start: 20090310, end: 20090327

REACTIONS (1)
  - RENAL FAILURE [None]
